FAERS Safety Report 9605463 (Version 1)
Quarter: 2013Q4

REPORT INFORMATION
  Report Type: Spontaneous
  Country: US (occurrence: US)
  Receive Date: 20131008
  Receipt Date: 20131008
  Transmission Date: 20140711
  Serious: No
  Sender: FDA-Public Use
  Company Number: US-BAYER-2013-121194

PATIENT
  Sex: Female
  Weight: 52.15 kg

DRUGS (8)
  1. BETASERON [Suspect]
     Dosage: 0.3 MG, UNK
     Dates: start: 199307
  2. LEVOTHYROXIN [Concomitant]
  3. TIZANIDINE [Concomitant]
  4. PROVIGIL [Concomitant]
  5. LEXAPRO [Concomitant]
  6. MULTIVITAMIN [Concomitant]
  7. VITAMINA D2 [Concomitant]
  8. B-COMPLEX [VITAMIN B NOS] [Concomitant]
     Dosage: 1 DF, UNK

REACTIONS (1)
  - Injection site urticaria [Recovered/Resolved]
